FAERS Safety Report 18930814 (Version 1)
Quarter: 2021Q1

REPORT INFORMATION
  Report Type: Spontaneous
  Country: US (occurrence: US)
  Receive Date: 20210224
  Receipt Date: 20210224
  Transmission Date: 20210420
  Serious: No
  Sender: FDA-Public Use
  Company Number: US-BIOCODEX SA-2021000022

PATIENT
  Sex: Male

DRUGS (4)
  1. ONFI [Concomitant]
     Active Substance: CLOBAZAM
  2. DIACOMIT [Suspect]
     Active Substance: STIRIPENTOL
     Indication: EPILEPSY
     Dosage: 1000 MG TWICE DAILY
     Route: 065
     Dates: start: 20200610, end: 20201126
  3. TOPAMAX [Concomitant]
     Active Substance: TOPIRAMATE
  4. CLONAZEPAM. [Concomitant]
     Active Substance: CLONAZEPAM

REACTIONS (3)
  - Therapeutic product ineffective for unapproved indication [Unknown]
  - Overdose [Unknown]
  - Product use in unapproved indication [Unknown]
